FAERS Safety Report 5648373-6 (Version None)
Quarter: 2008Q1

REPORT INFORMATION
  Report Type: 
  Country: None (occurrence: None)
  Receive Date: 20080303
  Receipt Date: 20080303
  Transmission Date: 20080703
  Serious: Yes (Other)
  Sender: FDA-Public Use
  Company Number: None

PATIENT
  Age: 71 Year
  Sex: Male

DRUGS (1)
  1. DILTIAZEM [Suspect]
     Indication: HYPERTENSION
     Dosage: 240MG BID PO
     Route: 048

REACTIONS (1)
  - HYPERSENSITIVITY [None]
